FAERS Safety Report 5045359-X (Version None)
Quarter: 2006Q3

REPORT INFORMATION
  Report Type: 
  Country: None (occurrence: None)
  Receive Date: 20060707
  Receipt Date: 20060216
  Transmission Date: 20061208
  Serious: No
  Sender: FDA-Public Use
  Company Number: US-GLAXOSMITHKLINE-A0594013A

PATIENT
  Age: 50 Year
  Sex: Female

DRUGS (3)
  1. LOTRONEX [Suspect]
     Indication: IRRITABLE BOWEL SYNDROME
     Dosage: 1TAB PER DAY
     Route: 048
     Dates: start: 20000101, end: 20020101
  2. LEVOXYL [Concomitant]
  3. ESTRATEST [Concomitant]

REACTIONS (1)
  - CONSTIPATION [None]
